FAERS Safety Report 23311774 (Version 1)
Quarter: 2023Q4

REPORT INFORMATION
  Report Type: Spontaneous
  Country: US (occurrence: None)
  Receive Date: 20231218
  Receipt Date: 20231218
  Transmission Date: 20240110
  Serious: No
  Sender: FDA-Public Use
  Company Number: None

PATIENT
  Sex: Female

DRUGS (1)
  1. CAPECITABINE [Suspect]
     Active Substance: CAPECITABINE
     Indication: Colon cancer
     Dosage: 1500MG ORAL??FREQUENCY:TAKE 3 TABLETS BY MOUTH IN THE MORNING AND 2 TABLETS BY MOUTH IN THE EVENING
     Route: 048
     Dates: start: 20220127

REACTIONS (1)
  - Tumour excision [None]
